FAERS Safety Report 7522823-2 (Version None)
Quarter: 2011Q2

REPORT INFORMATION
  Report Type: 
  Country: None (occurrence: None)
  Receive Date: 20110603
  Receipt Date: 20110527
  Transmission Date: 20111010
  Serious: Yes (Hospitalization)
  Sender: FDA-Public Use
  Company Number: JP-PFIZER INC-2011010579

PATIENT
  Age: 65 Year
  Sex: Male

DRUGS (30)
  1. LANSOPRAZOLE [Suspect]
     Indication: REFLUX OESOPHAGITIS
     Dosage: 15 MG, 1X/DAY
     Route: 048
     Dates: end: 20110217
  2. CEFAZOLIN SODIUM [Suspect]
     Indication: PROCTITIS
     Dosage: UNK
     Route: 048
     Dates: start: 20101022, end: 20110217
  3. LIPIDIL [Suspect]
     Indication: HYPERLIPIDAEMIA
     Dosage: 100 DF, 1X/DAY
     Route: 048
     Dates: end: 20110126
  4. FENTANYL [Suspect]
     Indication: STOMATITIS
     Dosage: UNK
     Route: 041
     Dates: start: 20110102, end: 20110119
  5. METHOTREXATE SODIUM [Suspect]
     Indication: ADULT T-CELL LYMPHOMA/LEUKAEMIA
     Dosage: 15 MG DAILY
     Dates: start: 20101118, end: 20101118
  6. AMLODIPINE [Suspect]
     Indication: HYPERTENSION
     Dosage: 5 MG, 1X/DAY
     Route: 048
     Dates: start: 20101008, end: 20110217
  7. DIFLUCAN [Suspect]
     Indication: ANTIFUNGAL PROPHYLAXIS
     Dosage: 100 MG, 1X/DAY
     Route: 048
     Dates: end: 20110111
  8. VANCOMYCINE HYDROCHLORIDE [Suspect]
     Indication: PNEUMONIA
     Dosage: 0.5 G, 2X/DAY
     Route: 041
     Dates: start: 20110107, end: 20110117
  9. CYMERIN [Suspect]
     Indication: ADULT T-CELL LYMPHOMA/LEUKAEMIA
     Dosage: 60 MG/M2, UNK
     Route: 041
     Dates: start: 20101014, end: 20101229
  10. FILDESIN [Suspect]
     Indication: ADULT T-CELL LYMPHOMA/LEUKAEMIA
     Dosage: 2.4 MG/M2, UNK
     Route: 041
     Dates: start: 20101026, end: 20101208
  11. ZOVIRAX [Suspect]
     Indication: PROPHYLAXIS
     Dosage: 200 MG, 1X/DAY
     Route: 048
     Dates: end: 20110128
  12. DOXORUBICIN HYDROCHLORIDE [Suspect]
     Dosage: 30 MG/M2, UNK
     Route: 041
     Dates: start: 20101014, end: 20101014
  13. DOXORUBICIN HYDROCHLORIDE [Suspect]
     Dosage: 40 MG/M2, UNK
     Route: 041
     Dates: start: 20101116, end: 20101116
  14. PREDNISOLONE [Suspect]
     Indication: ADULT T-CELL LYMPHOMA/LEUKAEMIA
     Dosage: 10 MG/M2, UNK
     Dates: start: 20101118, end: 20101118
  15. PANTOSIN [Suspect]
     Indication: CONSTIPATION
     Dosage: UNK
     Route: 048
     Dates: start: 20110107, end: 20110110
  16. DOXORUBICIN HYDROCHLORIDE [Suspect]
     Dosage: 30 MG/M2, UNK
     Route: 041
     Dates: start: 20101229, end: 20101229
  17. CYCLOPHOSPHAMIDE [Suspect]
     Indication: ADULT T-CELL LYMPHOMA/LEUKAEMIA
     Dosage: 350 MG/M2, UNK
     Route: 041
     Dates: start: 20101007, end: 20101222
  18. DOXORUBICIN HYDROCHLORIDE [Suspect]
     Dosage: 40 MG/M2, UNK
     Route: 041
     Dates: start: 20101222, end: 20101222
  19. ALLOPURINOL [Suspect]
     Indication: HYPERURICAEMIA
     Dosage: 100 MG, 1X/DAY
     Route: 048
     Dates: end: 20110120
  20. DOXORUBICIN HYDROCHLORIDE [Suspect]
     Dosage: 30 MG/M2, UNK
     Route: 041
     Dates: start: 20101124, end: 20101124
  21. PREDNISOLONE [Suspect]
     Indication: ADULT T-CELL LYMPHOMA/LEUKAEMIA
     Dosage: 40 MG/M2, UNK
     Route: 048
     Dates: start: 20101007, end: 20101229
  22. CARBOPLATIN [Suspect]
     Indication: ADULT T-CELL LYMPHOMA/LEUKAEMIA
     Dosage: 250 MG/M2, UNK
     Route: 041
     Dates: start: 20101026, end: 20101208
  23. MEROPENEM [Suspect]
     Indication: PNEUMONIA
     Dosage: 0.5 G, 2X/DAY
     Route: 041
     Dates: start: 20110107, end: 20110124
  24. MAGMITT [Suspect]
     Indication: CONSTIPATION
     Dosage: UNK
     Route: 048
     Dates: start: 20110107, end: 20110110
  25. KW-0761 [Suspect]
     Indication: ADULT T-CELL LYMPHOMA/LEUKAEMIA
     Dosage: 1 MG/KG, UNK
     Route: 041
     Dates: start: 20101008, end: 20101221
  26. ONCOVIN [Suspect]
     Indication: ADULT T-CELL LYMPHOMA/LEUKAEMIA
     Dosage: 1 MG/M2, UNK
     Route: 041
     Dates: start: 20101007, end: 20101222
  27. ETOPOSIDE [Suspect]
     Indication: ADULT T-CELL LYMPHOMA/LEUKAEMIA
     Dosage: 100 MG/M2, 3X/DAY
     Route: 041
     Dates: start: 20101026, end: 20101208
  28. DOXORUBICIN HYDROCHLORIDE [Suspect]
     Indication: ADULT T-CELL LYMPHOMA/LEUKAEMIA
     Dosage: 40 MG/M2, UNK
     Route: 041
     Dates: start: 20101007, end: 20101007
  29. CYTARABINE [Suspect]
     Indication: ADULT T-CELL LYMPHOMA/LEUKAEMIA
     Dosage: 40 MG DAILY
     Dates: start: 20101118, end: 20101118
  30. SULFAMETHOXAZOLE [Suspect]
     Indication: ANTIFUNGAL PROPHYLAXIS
     Dosage: 1 DF, 1X/DAY
     Route: 048
     Dates: end: 20110128

REACTIONS (1)
  - PNEUMONIA [None]
